FAERS Safety Report 5768207-9 (Version None)
Quarter: 2008Q2

REPORT INFORMATION
  Report Type: 
  Country: None (occurrence: None)
  Receive Date: 20080612
  Receipt Date: 20080605
  Transmission Date: 20081010
  Serious: Yes (Hospitalization)
  Sender: FDA-Public Use
  Company Number: DE-MERCK-0309DEU00188

PATIENT
  Age: 41 Year
  Sex: Male
  Weight: 90 kg

DRUGS (3)
  1. PROPECIA [Suspect]
     Indication: ANDROGENETIC ALOPECIA
     Route: 048
     Dates: start: 20020625, end: 20031202
  2. PROPECIA [Suspect]
     Route: 048
     Dates: start: 20040101, end: 20071229
  3. CITALOPRAM HYDROBROMIDE [Concomitant]
     Indication: MENTAL DISORDER
     Route: 065
     Dates: start: 20010101

REACTIONS (1)
  - LIPOMA [None]
